FAERS Safety Report 8911274 (Version 1)
Quarter: 2012Q4

REPORT INFORMATION
  Report Type: 
  Country: US (occurrence: US)
  Receive Date: 20121116
  Receipt Date: 20121116
  Transmission Date: 20130627
  Serious: No
  Sender: FDA-Public Use
  Company Number: US-GLAXOSMITHKLINE-A0994962A

PATIENT
  Age: 75 Year
  Sex: Female

DRUGS (4)
  1. VOTRIENT [Suspect]
     Indication: RENAL CANCER
     Dosage: 800MG Per day
     Route: 048
     Dates: start: 201209
  2. LEVOTHYROXINE [Concomitant]
  3. LORAZEPAM [Concomitant]
  4. CARVEDILOL [Concomitant]

REACTIONS (6)
  - Abdominal pain upper [Not Recovered/Not Resolved]
  - Diarrhoea [Unknown]
  - Rhinorrhoea [Unknown]
  - Confusional state [Unknown]
  - Hair colour changes [Unknown]
  - Fatigue [Unknown]
